FAERS Safety Report 23572931 (Version 4)
Quarter: 2025Q2

REPORT INFORMATION
  Report Type: Report from Study
  Country: US (occurrence: US)
  Receive Date: 20240227
  Receipt Date: 20250403
  Transmission Date: 20250717
  Serious: Yes (Other)
  Sender: TAKEDA
  Company Number: US-TAKEDA-2022TUS094381

PATIENT
  Age: 67 Year
  Sex: Female
  Weight: 115 kg

DRUGS (30)
  1. LANADELUMAB [Suspect]
     Active Substance: LANADELUMAB
     Indication: Sideroblastic anaemia
     Dosage: 300 MILLIGRAM, Q2WEEKS
     Dates: start: 20221119
  2. LANADELUMAB [Suspect]
     Active Substance: LANADELUMAB
     Indication: Immune system disorder
  3. LANADELUMAB [Suspect]
     Active Substance: LANADELUMAB
  4. FIRAZYR [Suspect]
     Active Substance: ICATIBANT ACETATE
     Indication: Sideroblastic anaemia
  5. FIRAZYR [Suspect]
     Active Substance: ICATIBANT ACETATE
  6. RUCONEST [Concomitant]
     Active Substance: CONESTAT ALFA
  7. WARFARIN SODIUM [Concomitant]
     Active Substance: WARFARIN SODIUM
  8. TOPROL XL [Concomitant]
     Active Substance: METOPROLOL SUCCINATE
  9. BUDESONIDE [Concomitant]
     Active Substance: BUDESONIDE
  10. SYMBICORT [Concomitant]
     Active Substance: BUDESONIDE\FORMOTEROL FUMARATE DIHYDRATE
  11. SODIUM CHLORIDE [Concomitant]
     Active Substance: SODIUM CHLORIDE
  12. EPINEPHRINE [Concomitant]
     Active Substance: EPINEPHRINE
  13. SYNTHROID [Concomitant]
     Active Substance: LEVOTHYROXINE SODIUM
  14. DICYCLOMINE HYDROCHLORIDE [Concomitant]
     Active Substance: DICYCLOMINE HYDROCHLORIDE
  15. METFORMIN [Concomitant]
     Active Substance: METFORMIN HYDROCHLORIDE
  16. MAGNESIUM CITRATE [Concomitant]
     Active Substance: MAGNESIUM CITRATE
  17. D mannose [Concomitant]
  18. PROAIR DIGIHALER [Concomitant]
     Active Substance: ALBUTEROL SULFATE
  19. STERILE WATER [Concomitant]
     Active Substance: WATER
  20. ESTRACE [Concomitant]
     Active Substance: ESTRADIOL
  21. PERFOROMIST [Concomitant]
     Active Substance: FORMOTEROL FUMARATE DIHYDRATE
  22. VITAMIN E [Concomitant]
     Active Substance: .ALPHA.-TOCOPHEROL
  23. TYLENOL EXTRA STRENGTH [Concomitant]
     Active Substance: ACETAMINOPHEN
  24. NORVASC [Concomitant]
     Active Substance: AMLODIPINE BESYLATE
  25. SERTRALINE HYDROCHLORIDE [Concomitant]
     Active Substance: SERTRALINE HYDROCHLORIDE
  26. VASCEPA [Concomitant]
     Active Substance: ICOSAPENT ETHYL
  27. RANEXA [Concomitant]
     Active Substance: RANOLAZINE
  28. LIPITOR [Concomitant]
     Active Substance: ATORVASTATIN CALCIUM
  29. OZEMPIC [Concomitant]
     Active Substance: SEMAGLUTIDE
  30. MIRALAX [Concomitant]
     Active Substance: POLYETHYLENE GLYCOL 3350

REACTIONS (12)
  - Immunodeficiency common variable [Unknown]
  - Nausea [Unknown]
  - Nasopharyngitis [Unknown]
  - Asthma [Unknown]
  - Off label use [Unknown]
  - Cough [Unknown]
  - Malaise [Unknown]
  - Pharyngitis streptococcal [Unknown]
  - Viral infection [Unknown]
  - Influenza [Unknown]
  - Hereditary angioedema [Unknown]
  - Dizziness [Unknown]

NARRATIVE: CASE EVENT DATE: 20221119
